FAERS Safety Report 6309724-2 (Version None)
Quarter: 2009Q3

REPORT INFORMATION
  Report Type: 
  Country: None (occurrence: None)
  Receive Date: 20090814
  Receipt Date: 20090812
  Transmission Date: 20100115
  Serious: Yes (Death)
  Sender: FDA-Public Use
  Company Number: PHHY2009BR24812

PATIENT
  Sex: Female

DRUGS (1)
  1. DIOVAN [Suspect]
     Indication: HYPERTENSION
     Dosage: 1 DF (80 MG) PER DAY
     Route: 048
     Dates: start: 20040101, end: 20090201

REACTIONS (2)
  - MULTIPLE INJURIES [None]
  - ROAD TRAFFIC ACCIDENT [None]
